FAERS Safety Report 23635417 (Version 2)
Quarter: 2024Q2

REPORT INFORMATION
  Report Type: Spontaneous
  Country: US (occurrence: US)
  Receive Date: 20240315
  Receipt Date: 20240402
  Transmission Date: 20240716
  Serious: Yes (Life-Threatening, Hospitalization)
  Sender: FDA-Public Use
  Company Number: US-TEVA-VS-3169375

PATIENT
  Age: 69 Year
  Sex: Female

DRUGS (4)
  1. VENLAFAXINE [Suspect]
     Active Substance: VENLAFAXINE HYDROCHLORIDE
     Indication: Depression
     Route: 065
  2. ESCITALOPRAM [Suspect]
     Active Substance: ESCITALOPRAM OXALATE
     Indication: Depression
     Route: 065
  3. TRAMADOL [Suspect]
     Active Substance: TRAMADOL\TRAMADOL HYDROCHLORIDE
     Indication: Back pain
     Route: 065
  4. FENTANYL [Suspect]
     Active Substance: FENTANYL\FENTANYL CITRATE
     Indication: Product used for unknown indication
     Route: 065

REACTIONS (1)
  - Serotonin syndrome [Recovering/Resolving]
